FAERS Safety Report 12198888 (Version 1)
Quarter: 2016Q1

REPORT INFORMATION
  Report Type: Spontaneous
  Country: None (occurrence: None)
  Receive Date: 20160321
  Receipt Date: 20160321
  Transmission Date: 20160526
  Serious: No
  Sender: FDA-Public Use
  Company Number: None

PATIENT
  Sex: Female

DRUGS (1)
  1. SAXAGLIPTIN [Suspect]
     Active Substance: SAXAGLIPTIN

REACTIONS (4)
  - Diarrhoea [None]
  - Exposure during pregnancy [None]
  - Gestational diabetes [None]
  - Blood pressure increased [None]
